FAERS Safety Report 9831084 (Version 1)
Quarter: 2014Q1

REPORT INFORMATION
  Report Type: Spontaneous
  Country: IT (occurrence: IT)
  Receive Date: 20140120
  Receipt Date: 20140120
  Transmission Date: 20141002
  Serious: Yes (Other)
  Sender: FDA-Public Use
  Company Number: IT-ROCHE-1336122

PATIENT
  Age: 72 Year
  Sex: Female

DRUGS (3)
  1. LUCENTIS [Suspect]
     Indication: MACULOPATHY
     Route: 050
     Dates: start: 20130422
  2. LUCENTIS [Suspect]
     Route: 050
     Dates: start: 20131118
  3. AFLIBERCEPT [Concomitant]

REACTIONS (1)
  - Retinal haemorrhage [Not Recovered/Not Resolved]
